FAERS Safety Report 9783412 (Version 1)
Quarter: 2013Q4

REPORT INFORMATION
  Report Type: Spontaneous
  Country: US (occurrence: None)
  Receive Date: 20131223
  Receipt Date: 20131223
  Transmission Date: 20140711
  Serious: Yes (Hospitalization)
  Sender: FDA-Public Use
  Company Number: 2013PL000217

PATIENT
  Age: 23 Year
  Sex: Male

DRUGS (1)
  1. MERCAPTOPURINE [Suspect]
     Indication: CROHN^S DISEASE

REACTIONS (7)
  - Liver disorder [None]
  - Splenomegaly [None]
  - Portal hypertension [None]
  - Small intestinal obstruction [None]
  - Leukocytosis [None]
  - Microcytic anaemia [None]
  - Drug-induced liver injury [None]
